FAERS Safety Report 25807933 (Version 1)
Quarter: 2025Q3

REPORT INFORMATION
  Report Type: Spontaneous
  Country: US (occurrence: US)
  Receive Date: 20250916
  Receipt Date: 20250916
  Transmission Date: 20251021
  Serious: Yes (Other)
  Sender: LUNDBECK
  Company Number: US-LUNDBECK-DKLU4019234

PATIENT
  Age: 12 Month
  Sex: Female

DRUGS (1)
  1. VIGABATRIN [Suspect]
     Active Substance: VIGABATRIN
     Indication: Infantile spasms

REACTIONS (2)
  - Neurotoxicity [Recovering/Resolving]
  - Magnetic resonance imaging head abnormal [Recovering/Resolving]
